FAERS Safety Report 19462964 (Version 1)
Quarter: 2021Q2

REPORT INFORMATION
  Report Type: Spontaneous
  Country: US (occurrence: US)
  Receive Date: 20210625
  Receipt Date: 20210625
  Transmission Date: 20210717
  Serious: Yes (Other)
  Sender: FDA-Public Use
  Company Number: US-PURDUE-USA-2021-0272154

PATIENT
  Age: 51 Year
  Sex: Male

DRUGS (10)
  1. NON?PMN MORPHINE SULFATE [Suspect]
     Active Substance: MORPHINE SULFATE
     Dosage: 2.2 MG, DAILY
     Route: 037
     Dates: start: 20180925, end: 20181008
  2. NON?PMN MORPHINE SULFATE [Suspect]
     Active Substance: MORPHINE SULFATE
     Dosage: 1.89 MG, DAILY
     Route: 037
     Dates: start: 20180613, end: 20180725
  3. NON?PMN MORPHINE SULFATE [Suspect]
     Active Substance: MORPHINE SULFATE
     Dosage: 1.726 MG, DAILY
     Route: 037
     Dates: start: 20180417, end: 20180612
  4. NON?PMN MORPHINE SULFATE [Suspect]
     Active Substance: MORPHINE SULFATE
     Dosage: 1.2 MG, DAILY (50 MCG Q1H)
     Route: 037
     Dates: start: 20171229, end: 20180205
  5. NON?PMN MORPHINE SULFATE [Suspect]
     Active Substance: MORPHINE SULFATE
     Dosage: 40 MCG, Q1H
     Route: 037
  6. NON?PMN MORPHINE SULFATE [Suspect]
     Active Substance: MORPHINE SULFATE
     Indication: PAIN
     Dosage: 2.42 MG, DAILY
     Route: 037
     Dates: start: 20181009, end: 20181217
  7. NON?PMN MORPHINE SULFATE [Suspect]
     Active Substance: MORPHINE SULFATE
     Dosage: 1.439 MG, DAILY
     Route: 037
     Dates: start: 20180206, end: 20180416
  8. NON?PMN MORPHINE SULFATE [Suspect]
     Active Substance: MORPHINE SULFATE
     Dosage: 50 MCG, Q1H
     Route: 037
  9. METHADONE [Concomitant]
     Active Substance: METHADONE HYDROCHLORIDE
     Indication: PROPHYLAXIS
     Dosage: 40 MG, DAILY
  10. NON?PMN MORPHINE SULFATE [Suspect]
     Active Substance: MORPHINE SULFATE
     Dosage: 2 MG, DAILY
     Route: 037
     Dates: start: 20180726, end: 20180924

REACTIONS (1)
  - Arachnoiditis [Recovering/Resolving]
